FAERS Safety Report 4284742-7 (Version None)
Quarter: 2004Q1

REPORT INFORMATION
  Report Type: 
  Country: None (occurrence: None)
  Receive Date: 20040202
  Receipt Date: 20040107
  Transmission Date: 20041129
  Serious: No
  Sender: FDA-Public Use
  Company Number: 2003-DE-04467DE

PATIENT
  Age: 44 Year
  Sex: Male

DRUGS (3)
  1. VIRAMUNE [Suspect]
     Indication: HIV INFECTION
     Dosage: DAILY DOSE:200/400MG (200MG), PO
     Route: 048
     Dates: start: 20020812, end: 20021004
  2. VIDEX [Concomitant]
  3. ZIAGEN [Concomitant]

REACTIONS (1)
  - HEPATITIS TOXIC [None]
